FAERS Safety Report 15409253 (Version 1)
Quarter: 2018Q3

REPORT INFORMATION
  Report Type: Other
  Country: US (occurrence: US)
  Receive Date: 20180920
  Receipt Date: 20180920
  Transmission Date: 20181010
  Serious: No
  Sender: FDA-Public Use
  Company Number: US-LEADIANT BIOSCIENCES INC-2017STPI000668

PATIENT
  Age: 49 Year
  Sex: Female

DRUGS (1)
  1. MATULANE [Suspect]
     Active Substance: PROCARBAZINE HYDROCHLORIDE
     Indication: BRAIN NEOPLASM MALIGNANT
     Dosage: 150 MG ON DAYS 8?9, 100 MG ON DAYS 10?21
     Route: 048
     Dates: start: 20170509

REACTIONS (1)
  - Rash [Unknown]

NARRATIVE: CASE EVENT DATE: 201708
